FAERS Safety Report 17963983 (Version 1)
Quarter: 2020Q2

REPORT INFORMATION
  Report Type: Spontaneous
  Country: IT (occurrence: IT)
  Receive Date: 20200630
  Receipt Date: 20200630
  Transmission Date: 20200714
  Serious: Yes (Other)
  Sender: FDA-Public Use
  Company Number: IT-IBIGEN-2020.08953

PATIENT
  Age: 80 Year
  Sex: Female
  Weight: 85 kg

DRUGS (1)
  1. PIPERACILLINA E TAZOBACTAM IBIGEN 4 G/ 0,5 G POLVERE PER SOLUZIONE PER [Suspect]
     Active Substance: PIPERACILLIN SODIUM\TAZOBACTAM SODIUM
     Route: 042
     Dates: start: 20200611, end: 20200617

REACTIONS (1)
  - Toxic skin eruption [Recovering/Resolving]

NARRATIVE: CASE EVENT DATE: 20200617
